FAERS Safety Report 5250256-0 (Version None)
Quarter: 2007Q1

REPORT INFORMATION
  Report Type: 
  Country: None (occurrence: None)
  Receive Date: 20070228
  Receipt Date: 20060322
  Transmission Date: 20070707
  Serious: No
  Sender: FDA-Public Use
  Company Number: US200512000062

PATIENT
  Age: 41 Year
  Sex: Female
  Weight: 65.3 kg

DRUGS (5)
  1. LAMICTAL [Suspect]
     Indication: DRUG USE FOR UNKNOWN INDICATION
     Route: 048
  2. CYMBALTA [Suspect]
     Indication: DRUG USE FOR UNKNOWN INDICATION
     Route: 065
  3. VICODIN [Concomitant]
  4. REGLAN [Concomitant]
  5. MIRALAX [Concomitant]

REACTIONS (1)
  - HYPONATRAEMIA [None]
